FAERS Safety Report 20808415 (Version 2)
Quarter: 2022Q2

REPORT INFORMATION
  Report Type: Other
  Country: DE (occurrence: DE)
  Receive Date: 20220510
  Receipt Date: 20220621
  Transmission Date: 20220721
  Serious: Yes (Other)
  Sender: FDA-Public Use
  Company Number: DE-MACLEODS PHARMACEUTICALS US LTD-MAC2022035476

PATIENT

DRUGS (7)
  1. AMLODIPINE [Interacting]
     Active Substance: AMLODIPINE BESYLATE
     Indication: Product used for unknown indication
     Dosage: 5 MILLIGRAM, BID; TAKE 5 MG IN THE MORNING AND IN THE EVENING ( EVERY 12 HOUR)
     Route: 065
  2. VALSARTAN [Interacting]
     Active Substance: VALSARTAN
     Indication: Product used for unknown indication
     Dosage: 160 MILLIGRAM, BID; TAKE 160MG IN THE MORNING AND IN THE EVENING
     Route: 065
  3. HYDROCHLOROTHIAZIDE [Interacting]
     Active Substance: HYDROCHLOROTHIAZIDE
     Indication: Product used for unknown indication
     Dosage: 12.5 MILLIGRAM, QD; INGESTION EARLY
     Route: 065
  4. HYPERICUM PERFORATUM WHOLE [Interacting]
     Active Substance: HYPERICUM PERFORATUM WHOLE
     Indication: Depression
     Dosage: UNK
     Route: 065
     Dates: start: 20211101, end: 20220411
  5. HYPERICUM PERFORATUM WHOLE [Interacting]
     Active Substance: HYPERICUM PERFORATUM WHOLE
     Indication: Generalised anxiety disorder
  6. BUDESONIDE [Interacting]
     Active Substance: BUDESONIDE
     Indication: Asthma
     Dosage: 1 DOSAGE FORM, BID; 1 STROKE IN THE MORNING AND IN THE EVENING
  7. LEVOTHYROXINE SODIUM [Interacting]
     Active Substance: LEVOTHYROXINE SODIUM
     Indication: Product used for unknown indication
     Dosage: UNK
     Route: 065

REACTIONS (6)
  - Blood pressure increased [Recovered/Resolved]
  - Arrhythmia [Recovering/Resolving]
  - Panic disorder [Unknown]
  - Anxiety [Unknown]
  - Muscle spasms [Recovering/Resolving]
  - Drug interaction [Unknown]

NARRATIVE: CASE EVENT DATE: 20220118
